FAERS Safety Report 18511801 (Version 1)
Quarter: 2020Q4

REPORT INFORMATION
  Report Type: Spontaneous
  Country: CN (occurrence: CN)
  Receive Date: 20201117
  Receipt Date: 20201117
  Transmission Date: 20210114
  Serious: Yes (Other)
  Sender: FDA-Public Use
  Company Number: CN-PFIZER INC-2020449569

PATIENT
  Age: 8 Year
  Sex: Male
  Weight: 35 kg

DRUGS (13)
  1. VITAMIN B6 [Suspect]
     Active Substance: PYRIDOXINE HYDROCHLORIDE
     Indication: BRONCHITIS
  2. GLUCOSE/SODIUM CHLORIDE [Concomitant]
     Active Substance: DEXTROSE\SODIUM CHLORIDE
     Indication: VEHICLE SOLUTION USE
     Dosage: 100 ML, 1X/DAY
     Route: 041
     Dates: start: 20201105, end: 20201105
  3. SODIUM CHLORIDE. [Concomitant]
     Active Substance: SODIUM CHLORIDE
     Indication: VEHICLE SOLUTION USE
     Dosage: 350 ML, 1X/DAY
     Route: 041
     Dates: start: 20201106, end: 20201106
  4. VITAMIN C [Concomitant]
     Active Substance: ASCORBIC ACID
     Indication: BRONCHITIS
  5. QI XIAN [Suspect]
     Active Substance: AZITHROMYCIN
     Indication: TONSILLITIS
     Dosage: 0.33 G, 1X/DAY
     Route: 041
     Dates: start: 20201106, end: 20201106
  6. GLUCOSE [Concomitant]
     Active Substance: DEXTROSE
     Indication: VEHICLE SOLUTION USE
     Dosage: 100 ML, 1X/DAY
     Route: 041
     Dates: start: 20201105, end: 20201106
  7. ZITHROMAX [Suspect]
     Active Substance: AZITHROMYCIN DIHYDRATE
     Indication: TONSILLITIS
     Dosage: 2.5 BAGS, 1X/DAY
     Route: 048
     Dates: start: 20201105, end: 20201105
  8. YANHUNING [Suspect]
     Active Substance: ANDROGRAPHOLIDE
     Indication: TONSILLITIS
     Dosage: 160 MG, 1X/DAY
     Route: 041
     Dates: start: 20201105, end: 20201106
  9. YANHUNING [Suspect]
     Active Substance: ANDROGRAPHOLIDE
     Indication: BRONCHITIS
  10. VITAMIN B6 [Suspect]
     Active Substance: PYRIDOXINE HYDROCHLORIDE
     Indication: TONSILLITIS
     Dosage: 0.1 G, 1X/DAY
     Route: 041
     Dates: start: 20201106, end: 20201106
  11. ZITHROMAX [Suspect]
     Active Substance: AZITHROMYCIN DIHYDRATE
     Indication: BRONCHITIS
  12. VITAMIN C [Concomitant]
     Active Substance: ASCORBIC ACID
     Indication: TONSILLITIS
     Dosage: 1 G, 1X/DAY
     Route: 041
     Dates: start: 20201105, end: 20201105
  13. QI XIAN [Suspect]
     Active Substance: AZITHROMYCIN
     Indication: BRONCHITIS

REACTIONS (8)
  - Swelling of eyelid [Recovering/Resolving]
  - Cough [Recovering/Resolving]
  - Eyelid oedema [Recovering/Resolving]
  - Conjunctival hyperaemia [Recovering/Resolving]
  - Erythema of eyelid [Recovering/Resolving]
  - Ocular discomfort [Recovering/Resolving]
  - Papule [Recovering/Resolving]
  - Eyelids pruritus [Recovering/Resolving]

NARRATIVE: CASE EVENT DATE: 20201106
